FAERS Safety Report 8994729 (Version 1)
Quarter: 2012Q4

REPORT INFORMATION
  Report Type: Spontaneous
  Country: US (occurrence: None)
  Receive Date: 20121228
  Receipt Date: 20121228
  Transmission Date: 20130627
  Serious: Yes (Hospitalization)
  Sender: FDA-Public Use
  Company Number: None

PATIENT
  Age: 20 Year
  Sex: Female
  Weight: 54.43 kg

DRUGS (1)
  1. ADDERALL [Suspect]
     Indication: ADHD
     Dates: start: 20121101, end: 20121204

REACTIONS (2)
  - Mania [None]
  - Psychotic disorder [None]
